FAERS Safety Report 6431957-5 (Version None)
Quarter: 2009Q4

REPORT INFORMATION
  Report Type: 
  Country: None (occurrence: None)
  Receive Date: 20091109
  Receipt Date: 20091029
  Transmission Date: 20100525
  Serious: Yes (Other)
  Sender: FDA-Public Use
  Company Number: US-JNJFOC-20091008693

PATIENT
  Age: 27 Year
  Sex: Female

DRUGS (2)
  1. ACETAMINOPHEN [Suspect]
     Route: 048
  2. ACETAMINOPHEN [Suspect]
     Indication: DRUG USE FOR UNKNOWN INDICATION
     Dosage: UNKNOWN DOSE INGESTED OVER A 2 DAY PERIOD
     Route: 048

REACTIONS (4)
  - ACUTE HEPATIC FAILURE [None]
  - BRAIN OEDEMA [None]
  - ENCEPHALOPATHY [None]
  - OVERDOSE [None]
